FAERS Safety Report 19769067 (Version 1)
Quarter: 2021Q3

REPORT INFORMATION
  Report Type: Spontaneous
  Country: US (occurrence: US)
  Receive Date: 20210831
  Receipt Date: 20210831
  Transmission Date: 20211014
  Serious: Yes (Other)
  Sender: FDA-Public Use
  Company Number: NVSC2021US194636

PATIENT
  Sex: Male

DRUGS (2)
  1. CYCLOSPORINE. [Suspect]
     Active Substance: CYCLOSPORINE
     Indication: IMMUNOSUPPRESSANT DRUG THERAPY
     Dosage: UNK (GOAL 200 PERCENT TO 250 NG/ML)
     Route: 065
     Dates: end: 201908
  2. CYCLOSPORINE. [Suspect]
     Active Substance: CYCLOSPORINE
     Indication: APLASTIC ANAEMIA

REACTIONS (2)
  - Product use in unapproved indication [Unknown]
  - Renal injury [Unknown]

NARRATIVE: CASE EVENT DATE: 201908
